FAERS Safety Report 10924243 (Version 1)
Quarter: 2015Q1

REPORT INFORMATION
  Report Type: Spontaneous
  Country: US (occurrence: None)
  Receive Date: 20150129
  Receipt Date: 20150129
  Transmission Date: 20150721
  Serious: Yes (Hospitalization)
  Sender: FDA-Public Use
  Company Number: 115424U

PATIENT
  Age: 80 Year
  Sex: Female
  Weight: 65.7 kg

DRUGS (9)
  1. LANTUS (INSULIN GLARGINE) INJECTION [Concomitant]
  2. SIMVASTATIN (SIMVASTATIN) [Concomitant]
     Active Substance: SIMVASTATIN
  3. LISINOPRIL (LISINOPRIL) [Concomitant]
     Active Substance: LISINOPRIL
  4. VITAMIN (VITAMINS NOS) [Concomitant]
  5. KEPPRA XR [Suspect]
     Active Substance: LEVETIRACETAM
     Indication: SEIZURE
     Route: 048
  6. NOVOLOG (INSULIN ASPART) INJECTION [Concomitant]
  7. DOCUSATE SODIUM (DOCUSATE SODIUM) [Concomitant]
     Active Substance: DOCUSATE SODIUM
  8. ASPIRIN. [Concomitant]
     Active Substance: ASPIRIN
  9. ATARAX [Concomitant]
     Active Substance: HYDROXYZINE\HYDROXYZINE HYDROCHLORIDE

REACTIONS (3)
  - Seizure [None]
  - Inappropriate schedule of drug administration [None]
  - Generalised tonic-clonic seizure [None]

NARRATIVE: CASE EVENT DATE: 20140313
